FAERS Safety Report 4479303-0 (Version None)
Quarter: 2004Q4

REPORT INFORMATION
  Report Type: 
  Country: None (occurrence: None)
  Receive Date: 20041015
  Receipt Date: 20041005
  Transmission Date: 20050328
  Serious: Yes (Other)
  Sender: FDA-Public Use
  Company Number: 2004237243JP

PATIENT
  Age: 87 Year
  Sex: Female

DRUGS (3)
  1. XALATAN [Suspect]
     Indication: GLAUCOMA
     Dosage: QD, OPTHALMIC
     Route: 047
     Dates: start: 20031007, end: 20040920
  2. HYALURONATE SODIUM (HYALURONATE SODIUM) [Suspect]
     Indication: PUNCTATE KERATITIS
     Dosage: QID, OPTHALMIC
     Route: 047
     Dates: start: 20031007, end: 20041004
  3. METHYCOBAL (MECOBALAMIN) [Suspect]
     Indication: GLAUCOMATOUS OPTIC DISC ATROPHY
     Dosage: ORAL
     Route: 048
     Dates: start: 20030826

REACTIONS (2)
  - KERATITIS [None]
  - PEMPHIGOID [None]
